FAERS Safety Report 26191957 (Version 1)
Quarter: 2025Q4

REPORT INFORMATION
  Report Type: Report from Study
  Country: US (occurrence: US)
  Receive Date: 20251223
  Receipt Date: 20251223
  Transmission Date: 20260117
  Serious: Yes (Hospitalization)
  Sender: EISAI
  Company Number: US-Eisai-EC-2025-202219

PATIENT
  Age: 61 Year
  Sex: Male
  Weight: 117 kg

DRUGS (13)
  1. LENVIMA [Suspect]
     Active Substance: LENVATINIB
     Indication: Renal cancer
     Route: 048
     Dates: start: 20251212, end: 202512
  2. HYDROCODONE BITARTRATE AND ACETAMINOPHEN [Concomitant]
     Active Substance: ACETAMINOPHEN\HYDROCODONE BITARTRATE
  3. OMEPRAZOLE [Concomitant]
     Active Substance: OMEPRAZOLE
  4. ONDANSETRON HYDROCHLORIDE [Concomitant]
     Active Substance: ONDANSETRON HYDROCHLORIDE
  5. PROCHLORPERAZINE MALEATE [Concomitant]
     Active Substance: PROCHLORPERAZINE MALEATE
  6. TAMSULOSIN HYDROCHLORIDE [Concomitant]
     Active Substance: TAMSULOSIN HYDROCHLORIDE
  7. ALLEGRA ALLERGY [Concomitant]
     Active Substance: FEXOFENADINE HYDROCHLORIDE
  8. AMOXICILLIN [Concomitant]
     Active Substance: AMOXICILLIN
  9. DIPHENHYDRAMINE/MAALOX/LIDOCAINE [Concomitant]
  10. EVEROLIMUS [Concomitant]
     Active Substance: EVEROLIMUS
  11. FAMOTIDINE [Concomitant]
     Active Substance: FAMOTIDINE
  12. FLONASE ALLERGY RELIEF NASAL [Concomitant]
  13. GABAPENTIN [Concomitant]
     Active Substance: GABAPENTIN

REACTIONS (1)
  - Gallbladder rupture [Not Recovered/Not Resolved]

NARRATIVE: CASE EVENT DATE: 20251215
